FAERS Safety Report 13076527 (Version 2)
Quarter: 2017Q1

REPORT INFORMATION
  Report Type: Report from Study
  Country: CA (occurrence: CA)
  Receive Date: 20161230
  Receipt Date: 20170209
  Transmission Date: 20170428
  Serious: Yes (Other)
  Sender: FDA-Public Use
  Company Number: PHHY2016CA177808

PATIENT
  Age: 56 Year
  Sex: Female

DRUGS (1)
  1. EXTAVIA [Suspect]
     Active Substance: INTERFERON BETA-1B
     Indication: RELAPSING-REMITTING MULTIPLE SCLEROSIS
     Dosage: 8 MIU, QOD
     Route: 058
     Dates: start: 20110201

REACTIONS (13)
  - Central nervous system lesion [Unknown]
  - Hypoaesthesia [Unknown]
  - Hypertonia [Unknown]
  - Myelitis [Unknown]
  - Abasia [Unknown]
  - Optic neuropathy [Unknown]
  - Ataxia [Unknown]
  - White matter lesion [Unknown]
  - Balance disorder [Unknown]
  - Drug ineffective [Unknown]
  - Arthralgia [Recovered/Resolved]
  - Hyperreflexia [Unknown]
  - Muscular weakness [Unknown]

NARRATIVE: CASE EVENT DATE: 201102
